FAERS Safety Report 20062666 (Version 7)
Quarter: 2023Q4

REPORT INFORMATION
  Report Type: Report from Study
  Country: JP (occurrence: JP)
  Receive Date: 20211112
  Receipt Date: 20231213
  Transmission Date: 20240110
  Serious: No
  Sender: FDA-Public Use
  Company Number: JP-PFIZER INC-202101488638

PATIENT
  Age: 74 Year
  Sex: Male
  Weight: 64.6 kg

DRUGS (2)
  1. VYNDAQEL [Suspect]
     Active Substance: TAFAMIDIS MEGLUMINE
     Indication: Cardiac amyloidosis
     Dosage: 80 MG, 1X/DAY
     Route: 048
     Dates: start: 20200310
  2. AZOSEMIDE [Suspect]
     Active Substance: AZOSEMIDE
     Indication: Cardiac amyloidosis
     Dosage: 30 MG, 1X/DAY
     Route: 048
     Dates: start: 20200128

REACTIONS (2)
  - Renal impairment [Unknown]
  - Condition aggravated [Unknown]

NARRATIVE: CASE EVENT DATE: 20211116
